FAERS Safety Report 19897887 (Version 1)
Quarter: 2021Q3

REPORT INFORMATION
  Report Type: Spontaneous
  Country: US (occurrence: US)
  Receive Date: 20210930
  Receipt Date: 20210930
  Transmission Date: 20211014
  Serious: No
  Sender: FDA-Public Use
  Company Number: US-AJANTA PHARMA USA INC.-2118971

PATIENT
  Age: 56 Year
  Sex: Female
  Weight: 72.73 kg

DRUGS (1)
  1. CHOLESTYRAMINE (ANDA 211119) [Suspect]
     Active Substance: CHOLESTYRAMINE
     Indication: DETOXIFICATION
     Route: 048

REACTIONS (5)
  - Product use complaint [Recovered/Resolved]
  - Product solubility abnormal [Recovered/Resolved]
  - Choking sensation [Recovered/Resolved]
  - Product physical consistency issue [Recovered/Resolved]
  - Product substitution issue [Recovered/Resolved]
